FAERS Safety Report 6765786-X (Version None)
Quarter: 2010Q2

REPORT INFORMATION
  Report Type: 
  Country: None (occurrence: None)
  Receive Date: 20100611
  Receipt Date: 20100602
  Transmission Date: 20101027
  Serious: Yes (Disabling, Congenital Anomaly)
  Sender: FDA-Public Use
  Company Number: JP-ASTRAZENECA-2010SE18462

PATIENT
  Sex: Male
  Weight: 2 kg

DRUGS (7)
  1. BLOPRESS [Suspect]
     Indication: HYPERTENSION
     Route: 064
     Dates: start: 20041125, end: 20051027
  2. BLOPRESS [Suspect]
     Route: 064
     Dates: start: 20051028, end: 20080120
  3. COVERSYL [Suspect]
     Route: 064
     Dates: start: 20050209, end: 20080120
  4. ALDOMET [Suspect]
     Route: 064
     Dates: start: 20040319, end: 20040615
  5. ALDOMET [Suspect]
     Route: 064
     Dates: start: 20040616, end: 20080120
  6. MAINTATE [Suspect]
     Route: 064
     Dates: start: 20041230, end: 20080120
  7. FLUITRAN [Suspect]
     Route: 064
     Dates: start: 20040616, end: 20080120

REACTIONS (1)
  - RENAL APLASIA [None]
